FAERS Safety Report 10195870 (Version 1)
Quarter: 2014Q2

REPORT INFORMATION
  Report Type: Spontaneous
  Country: US (occurrence: None)
  Receive Date: 20140521
  Receipt Date: 20140521
  Transmission Date: 20141212
  Serious: Yes (Other)
  Sender: FDA-Public Use
  Company Number: 2014EXPUS00044

PATIENT
  Age: 66 Year
  Sex: Female

DRUGS (2)
  1. EXPAREL [Suspect]
     Indication: POSTOPERATIVE ANALGESIA
     Dosage: 60ML OF A SOLUTION OF 20ML DILUTED IN 100ML, 1X INTRAMUSCULAR
     Route: 030
     Dates: start: 20140505, end: 20140505
  2. MARCAINE [Concomitant]

REACTIONS (2)
  - Oxygen saturation decreased [None]
  - Hypotension [None]
